FAERS Safety Report 9193907 (Version 1)
Quarter: 2013Q1

REPORT INFORMATION
  Report Type: Spontaneous
  Country: FR (occurrence: FR)
  Receive Date: 20130327
  Receipt Date: 20130327
  Transmission Date: 20140127
  Serious: Yes (Hospitalization)
  Sender: FDA-Public Use
  Company Number: FR-PFIZER INC-2010165507

PATIENT
  Age: 60 Year
  Sex: Male
  Weight: 73 kg

DRUGS (6)
  1. REVATIO [Suspect]
     Indication: PULMONARY ARTERIAL HYPERTENSION
     Dosage: 20 MG, 3X/DAY
     Route: 048
     Dates: start: 20101109, end: 20101111
  2. TRUVADA [Concomitant]
     Indication: HIV INFECTION
     Dosage: 200 MG, 1X/DAY
     Route: 048
     Dates: start: 200706
  3. ISENTRESS [Concomitant]
     Indication: HIV INFECTION
     Dosage: UNK MG, 2X/DAY
     Route: 048
     Dates: start: 20080310
  4. ACTOS [Concomitant]
     Indication: DIABETES MELLITUS
     Dosage: 30 MG, 1X/DAY
     Route: 048
     Dates: start: 200910
  5. PREVISCAN [Concomitant]
     Indication: PULMONARY ARTERIAL HYPERTENSION
     Dosage: UNK
     Route: 048
     Dates: start: 20101110
  6. OXOMEMAZINE [Concomitant]
     Dosage: 1 COFFEE SPOON THRICE DAILY
     Route: 048
     Dates: start: 20101105, end: 20101112

REACTIONS (5)
  - Myalgia [Recovering/Resolving]
  - Photophobia [Recovered/Resolved]
  - Headache [Recovered/Resolved]
  - Diarrhoea [Recovered/Resolved]
  - Neck pain [Recovered/Resolved]
